FAERS Safety Report 9701261 (Version 2)
Quarter: 2013Q4

REPORT INFORMATION
  Report Type: Spontaneous
  Country: US (occurrence: US)
  Receive Date: 20131121
  Receipt Date: 20131121
  Transmission Date: 20140711
  Serious: Yes (Hospitalization)
  Sender: FDA-Public Use
  Company Number: US-GILEAD-2008-0016150

PATIENT
  Sex: 0

DRUGS (3)
  1. LETAIRIS [Suspect]
     Indication: PULMONARY ARTERIAL HYPERTENSION
  2. VENTAVIS [Concomitant]
  3. REMODULIN [Concomitant]

REACTIONS (1)
  - Fluid retention [None]
